FAERS Safety Report 10222188 (Version 3)
Quarter: 2018Q1

REPORT INFORMATION
  Report Type: Spontaneous
  Country: US (occurrence: US)
  Receive Date: 20140606
  Receipt Date: 20180215
  Transmission Date: 20180508
  Serious: No
  Sender: FDA-Public Use
  Company Number: US-OTSUKA-US-2014-11183

PATIENT

DRUGS (2)
  1. BUSULFEX [Suspect]
     Active Substance: BUSULFAN
     Indication: STEM CELL TRANSPLANT
     Dosage: 3.2 MG/KG, QD ON DAYS -5 TO -2
     Route: 042
  2. FLUDARABINE [Suspect]
     Active Substance: FLUDARABINE PHOSPHATE
     Indication: STEM CELL TRANSPLANT
     Dosage: 50 MG/M2, QD OVER 1 HOUR ON DAY -6 TO -2
     Route: 042

REACTIONS (1)
  - No adverse event [Unknown]
